FAERS Safety Report 19447259 (Version 1)
Quarter: 2021Q2

REPORT INFORMATION
  Report Type: Spontaneous
  Country: KR (occurrence: KR)
  Receive Date: 20210622
  Receipt Date: 20210622
  Transmission Date: 20210717
  Serious: Yes (Hospitalization, Other)
  Sender: FDA-Public Use
  Company Number: KR-ALVOGEN-2021-ALVOGEN-117110

PATIENT
  Age: 36 Year
  Sex: Female

DRUGS (1)
  1. LEVONORGESTREL. [Suspect]
     Active Substance: LEVONORGESTREL
     Indication: PRODUCT USED FOR UNKNOWN INDICATION
     Dosage: LEVONORGESTREL?RELEASING INTRAUTERINE SYSTEM (IUS)
     Route: 015
     Dates: start: 201611

REACTIONS (1)
  - Reversible cerebral vasoconstriction syndrome [Recovered/Resolved]
